FAERS Safety Report 7307624-2 (Version None)
Quarter: 2011Q1

REPORT INFORMATION
  Report Type: 
  Country: None (occurrence: None)
  Receive Date: 20110223
  Receipt Date: 20110209
  Transmission Date: 20110831
  Serious: No
  Sender: FDA-Public Use
  Company Number: US-PFIZER INC-US-WYE-H16077010

PATIENT
  Sex: Male

DRUGS (2)
  1. HYDROXYZINE HCL [Suspect]
     Dosage: UNK
     Route: 065
  2. PRISTIQ [Interacting]
     Dosage: UNK
     Route: 065

REACTIONS (2)
  - DRY MOUTH [None]
  - DRUG INTERACTION [None]
